FAERS Safety Report 23463920 (Version 2)
Quarter: 2024Q1

REPORT INFORMATION
  Report Type: Spontaneous
  Country: DE (occurrence: DE)
  Receive Date: 20240201
  Receipt Date: 20240219
  Transmission Date: 20240410
  Serious: Yes (Hospitalization)
  Sender: FDA-Public Use
  Company Number: DE-TEVA-VS-3150625

PATIENT
  Age: 43 Year
  Sex: Female

DRUGS (7)
  1. MELPHALAN [Suspect]
     Active Substance: MELPHALAN
     Indication: Bone marrow conditioning regimen
     Dosage: ON TWO CONSECUTIVE DAYS
     Route: 065
     Dates: start: 2023
  2. SECUKINUMAB [Suspect]
     Active Substance: SECUKINUMAB
     Indication: Systemic scleroderma
     Dosage: ON THE DAYS 0, 7, 14, 21, 28
     Route: 065
     Dates: start: 202306
  3. SECUKINUMAB [Suspect]
     Active Substance: SECUKINUMAB
     Indication: Systemic scleroderma
     Route: 065
     Dates: start: 2023
  4. CYCLOPHOSPHAMIDE [Concomitant]
     Active Substance: CYCLOPHOSPHAMIDE
     Indication: Systemic scleroderma
     Route: 065
     Dates: start: 202212, end: 2023
  5. RITUXIMAB [Suspect]
     Active Substance: RITUXIMAB
     Indication: Systemic scleroderma
     Route: 065
     Dates: start: 202301
  6. GRAFALON [Concomitant]
     Active Substance: LAPINE T-LYMPHOCYTE IMMUNE GLOBULIN
     Indication: Bone marrow conditioning regimen
     Dosage: TOTAL DOSAGE OF 15MG/KG
     Route: 065
     Dates: start: 2023
  7. UPADACITINIB [Suspect]
     Active Substance: UPADACITINIB
     Indication: Systemic scleroderma
     Dosage: OVER 2 WEEKS
     Route: 065
     Dates: start: 2023

REACTIONS (3)
  - Mucosal inflammation [Unknown]
  - Drug ineffective [Unknown]
  - Off label use [Unknown]

NARRATIVE: CASE EVENT DATE: 20230101
